FAERS Safety Report 15609173 (Version 13)
Quarter: 2019Q2

REPORT INFORMATION
  Report Type: Spontaneous
  Country: US (occurrence: US)
  Receive Date: 20181112
  Receipt Date: 20190528
  Transmission Date: 20190711
  Serious: Yes (Hospitalization)
  Sender: FDA-Public Use
  Company Number: US-ACTELION-A-NJ2018-181537

PATIENT
  Sex: Male
  Weight: 89.8 kg

DRUGS (5)
  1. ADEMPAS [Concomitant]
     Active Substance: RIOCIGUAT
  2. VELETRI [Suspect]
     Active Substance: EPOPROSTENOL
     Indication: PULMONARY HYPERTENSION
     Dosage: 20 NG/KG, PER MIN
     Route: 042
  3. VELETRI [Suspect]
     Active Substance: EPOPROSTENOL
     Dosage: 18 NG/KG, PER MIN
     Route: 042
  4. OPSUMIT [Suspect]
     Active Substance: MACITENTAN
     Indication: PULMONARY HYPERTENSION
     Dosage: 10 MG, QD
     Route: 048
  5. ELIQUIS [Concomitant]
     Active Substance: APIXABAN

REACTIONS (23)
  - Dependence on oxygen therapy [Unknown]
  - Abdominal pain [Unknown]
  - Pulmonary haemorrhage [Unknown]
  - Terminal state [Unknown]
  - Swelling face [Unknown]
  - Malaise [Unknown]
  - Pain in jaw [Unknown]
  - Chest pain [Unknown]
  - Epistaxis [Unknown]
  - Rash macular [Unknown]
  - Dyspnoea exertional [Unknown]
  - Platelet count decreased [Unknown]
  - Flushing [Unknown]
  - Back pain [Unknown]
  - Rash [Unknown]
  - Flank pain [Unknown]
  - Haemoptysis [Unknown]
  - Internal haemorrhage [Unknown]
  - Dyspnoea [Unknown]
  - Unevaluable event [Unknown]
  - Haemoglobin decreased [Unknown]
  - Gingival pain [Recovering/Resolving]
  - Condition aggravated [Unknown]
